FAERS Safety Report 6233689-5 (Version None)
Quarter: 2009Q2

REPORT INFORMATION
  Report Type: 
  Country: None (occurrence: None)
  Receive Date: 20090617
  Receipt Date: 20090611
  Transmission Date: 20091009
  Serious: Yes (Hospitalization)
  Sender: FDA-Public Use
  Company Number: US-GENENTECH-280956

PATIENT
  Sex: Male
  Weight: 78.005 kg

DRUGS (1)
  1. XOLAIR [Suspect]
     Indication: ASTHMA
     Dosage: 375 MG, Q2W
     Route: 058
     Dates: start: 20090402

REACTIONS (3)
  - CANDIDIASIS [None]
  - PNEUMONIA [None]
  - STAPHYLOCOCCAL INFECTION [None]
